FAERS Safety Report 20504076 (Version 3)
Quarter: 2022Q2

REPORT INFORMATION
  Report Type: Report from Study
  Country: US (occurrence: US)
  Receive Date: 20220222
  Receipt Date: 20220411
  Transmission Date: 20220721
  Serious: Yes (Hospitalization, Other)
  Sender: FDA-Public Use
  Company Number: US-NOVARTISPH-NVSC2022US035462

PATIENT
  Age: 57 Year
  Sex: Female

DRUGS (2)
  1. ENTRESTO [Suspect]
     Active Substance: SACUBITRIL\VALSARTAN
     Indication: Cardiac failure
     Dosage: 1 DOSAGE FORM, BID
     Route: 048
     Dates: start: 202108
  2. ENTRESTO [Suspect]
     Active Substance: SACUBITRIL\VALSARTAN
     Dosage: 1 DOSAGE FORM, BID
     Route: 048
     Dates: start: 20220214

REACTIONS (12)
  - COVID-19 [Unknown]
  - Dehydration [Unknown]
  - Hypotension [Recovered/Resolved]
  - Plasma cell myeloma [Unknown]
  - Epistaxis [Unknown]
  - Haemoptysis [Unknown]
  - Laboratory test abnormal [Unknown]
  - Bone lesion [Unknown]
  - Gait inability [Unknown]
  - Sciatica [Unknown]
  - Feeling abnormal [Unknown]
  - Dyspnoea [Unknown]

NARRATIVE: CASE EVENT DATE: 20211220
